FAERS Safety Report 23870331 (Version 3)
Quarter: 2024Q3

REPORT INFORMATION
  Report Type: Other
  Country: US (occurrence: US)
  Receive Date: 20240517
  Receipt Date: 20240819
  Transmission Date: 20241017
  Serious: Yes (Other)
  Sender: TRAVERE THERAPEUTICS
  Company Number: US-TRAVERE-2024TVT00453

PATIENT
  Age: 54 Year
  Sex: Male
  Weight: 127.91 kg

DRUGS (20)
  1. FILSPARI [Suspect]
     Active Substance: SPARSENTAN
     Indication: IgA nephropathy
     Route: 048
     Dates: start: 20240423, end: 20240506
  2. FILSPARI [Suspect]
     Active Substance: SPARSENTAN
     Route: 048
     Dates: start: 20240507, end: 20240530
  3. FILSPARI [Suspect]
     Active Substance: SPARSENTAN
     Route: 048
     Dates: start: 20240603, end: 20240625
  4. TARPEYO [Concomitant]
     Active Substance: BUDESONIDE
  5. VALSARTAN [Concomitant]
     Active Substance: VALSARTAN
  6. DAPAGLIFLOZIN [Concomitant]
     Active Substance: DAPAGLIFLOZIN
  7. TUMS [Concomitant]
     Active Substance: CALCIUM CARBONATE
  8. ZYLOPRIM [Concomitant]
     Active Substance: ALLOPURINOL
  9. BUDESONIDE [Concomitant]
     Active Substance: BUDESONIDE
  10. CALCIUM CARBONATE [Concomitant]
     Active Substance: CALCIUM CARBONATE
  11. CARVEDILOL [Concomitant]
     Active Substance: CARVEDILOL
  12. BUMEX [Concomitant]
     Active Substance: BUMETANIDE
  13. COREG [Concomitant]
     Active Substance: CARVEDILOL
  14. FARXIGA [Concomitant]
     Active Substance: DAPAGLIFLOZIN PROPANEDIOL
  15. docosahexaenoic acid/epa [Concomitant]
  16. VITAMINS [Concomitant]
     Active Substance: VITAMINS
  17. MINIPRESS [Concomitant]
     Active Substance: PRAZOSIN HYDROCHLORIDE
  18. XARELTO [Concomitant]
     Active Substance: RIVAROXABAN
  19. CRESTOR [Concomitant]
     Active Substance: ROSUVASTATIN CALCIUM
  20. VIAGRA [Concomitant]
     Active Substance: SILDENAFIL CITRATE

REACTIONS (2)
  - Renal impairment [Unknown]
  - Peripheral swelling [Recovering/Resolving]
